FAERS Safety Report 25762990 (Version 1)
Quarter: 2025Q3

REPORT INFORMATION
  Report Type: Report from Study
  Country: US (occurrence: US)
  Receive Date: 20250904
  Receipt Date: 20250904
  Transmission Date: 20251020
  Serious: No
  Sender: CELLTRION
  Company Number: US-CELLTRION INC.-2025US028307

PATIENT

DRUGS (2)
  1. ADALIMUMAB-AATY [Suspect]
     Active Substance: ADALIMUMAB-AATY
     Indication: Rheumatoid arthritis
     Dosage: 40 MG INJECTED SUBCUTANEOUSLY EVERY 2 WEEKS
     Route: 058
     Dates: start: 20250807
  2. ADALIMUMAB-AATY [Suspect]
     Active Substance: ADALIMUMAB-AATY

REACTIONS (3)
  - Fatigue [Recovered/Resolved]
  - Dizziness [Recovered/Resolved]
  - Injection site bruising [Recovering/Resolving]

NARRATIVE: CASE EVENT DATE: 20250807
